FAERS Safety Report 7489926-2 (Version None)
Quarter: 2011Q2

REPORT INFORMATION
  Report Type: 
  Country: None (occurrence: None)
  Receive Date: 20110517
  Receipt Date: 20110517
  Transmission Date: 20111010
  Serious: Yes (Disabling)
  Sender: FDA-Public Use
  Company Number: None

PATIENT
  Age: 32 Year
  Sex: Male
  Weight: 141.0687 kg

DRUGS (1)
  1. AVANDIA [Suspect]
     Indication: DIABETES MELLITUS
     Dosage: 1 TABLET EVERY DAY
     Dates: start: 20050801, end: 20050810

REACTIONS (3)
  - WEIGHT INCREASED [None]
  - DYSPNOEA [None]
  - VIITH NERVE PARALYSIS [None]
